FAERS Safety Report 22275322 (Version 1)
Quarter: 2023Q2

REPORT INFORMATION
  Report Type: Other
  Country: None (occurrence: CO)
  Receive Date: 20230502
  Receipt Date: 20230502
  Transmission Date: 20230722
  Serious: Yes (Hospitalization, Other)
  Sender: FDA-Public Use
  Company Number: CO-VistaPharm, Inc.-2141042

PATIENT
  Age: 40 Year
  Sex: Female

DRUGS (7)
  1. METHADONE HYDROCHLORIDE [Suspect]
     Active Substance: METHADONE HYDROCHLORIDE
     Indication: Substance use disorder
     Route: 048
  2. DEVICE [Suspect]
     Active Substance: DEVICE
  3. LIDOCAINE PATCH [Concomitant]
     Active Substance: LIDOCAINE
  4. LITHIUM CARBONATE [Concomitant]
     Active Substance: LITHIUM CARBONATE
  5. PREGABALIN [Concomitant]
     Active Substance: PREGABALIN
  6. DULOXETINE [Concomitant]
     Active Substance: DULOXETINE
  7. CLONAZEPAM [Concomitant]
     Active Substance: CLONAZEPAM

REACTIONS (1)
  - Cerebral ischaemia [Recovered/Resolved]
